FAERS Safety Report 8598867-9 (Version None)
Quarter: 2012Q3

REPORT INFORMATION
  Report Type: 
  Country: None (occurrence: None)
  Receive Date: 20120816
  Receipt Date: 20120808
  Transmission Date: 20120928
  Serious: Yes (Hospitalization)
  Sender: FDA-Public Use
  Company Number: US-GLAXOSMITHKLINE-A0989556A

PATIENT
  Age: 74 Year
  Sex: Female
  Weight: 75.9 kg

DRUGS (19)
  1. MIRTAZAPINE [Concomitant]
  2. ESOMEPRAZOLE MAGNESIUM [Concomitant]
  3. HUMALOG [Concomitant]
  4. PROCHLORPERAZINE [Concomitant]
  5. ALPRAZOLAM [Concomitant]
  6. ARZERRA [Suspect]
     Indication: CHRONIC LYMPHOCYTIC LEUKAEMIA
     Dosage: 2000MG CYCLIC
     Route: 042
     Dates: start: 20120619
  7. FLUCONAZOLE [Concomitant]
  8. ROSUVASTATIN [Concomitant]
  9. RAMIPRIL [Concomitant]
  10. PENTAMIDINE ISETHIONATE [Concomitant]
  11. ESTRADIOL [Concomitant]
  12. NEPAFENAC [Concomitant]
  13. CAMPATH [Suspect]
     Indication: CHRONIC LYMPHOCYTIC LEUKAEMIA
     Dosage: 30MG WEEKLY
     Dates: start: 20120605
  14. FERROUS SULFATE TAB [Concomitant]
  15. PRED FORTE [Concomitant]
  16. LANTUS [Concomitant]
  17. ACYCLOVIR [Concomitant]
  18. CYANOCOBALAMIN + FOLIC ACID + PYRIDOXINE HYDROCHLORIDE [Concomitant]
  19. VESICARE [Concomitant]

REACTIONS (1)
  - BLOOD CULTURE POSITIVE [None]
